FAERS Safety Report 8863757 (Version 1)
Quarter: 2012Q4

REPORT INFORMATION
  Report Type: 
  Country: US (occurrence: US)
  Receive Date: 20121024
  Receipt Date: 20121024
  Transmission Date: 20130627
  Serious: No
  Sender: FDA-Public Use
  Company Number: US-AMGEN-USASP2011063807

PATIENT
  Age: 46 Year
  Sex: Female
  Weight: 71.2 kg

DRUGS (5)
  1. ENBREL [Suspect]
     Indication: PRODUCT USED FOR UNKNOWN INDICATION
     Dosage: 50 mg, qwk
     Route: 058
  2. METHOTREXATE [Concomitant]
     Dosage: 2.5 mg, UNK
  3. SYNTHROID [Concomitant]
     Dosage: 175 mug, UNK
  4. LEUCOVORIN /00566701/ [Concomitant]
     Dosage: 5 mg, UNK
  5. MOTRIN [Concomitant]
     Dosage: 400 mg, UNK

REACTIONS (2)
  - Headache [Recovering/Resolving]
  - Migraine [Recovering/Resolving]
